FAERS Safety Report 24066903 (Version 3)
Quarter: 2024Q3

REPORT INFORMATION
  Report Type: Spontaneous
  Country: US (occurrence: US)
  Receive Date: 20240709
  Receipt Date: 20240917
  Transmission Date: 20241017
  Serious: No
  Sender: KARYOPHARM THERAPEUTICS
  Company Number: US-KARYOPHARM-2024KPT001050

PATIENT

DRUGS (9)
  1. XPOVIO [Suspect]
     Active Substance: SELINEXOR
     Indication: Plasma cell myeloma
     Dosage: 60 MG, WEEKLY
     Route: 048
     Dates: start: 202404, end: 202405
  2. XPOVIO [Suspect]
     Active Substance: SELINEXOR
     Dosage: 20 MG, WEEKLY
     Route: 048
     Dates: start: 20240507, end: 2024
  3. XPOVIO [Suspect]
     Active Substance: SELINEXOR
     Dosage: 40 MG, WEEKLY 2 20MG TABLETS
     Route: 048
     Dates: start: 2024, end: 20240730
  4. ZOFRAN [Concomitant]
     Active Substance: ONDANSETRON HYDROCHLORIDE
  5. OLANZAPINE [Concomitant]
     Active Substance: OLANZAPINE
  6. BORTEZOMIB [Concomitant]
     Active Substance: BORTEZOMIB
  7. DEXAMETHASONE [Concomitant]
     Active Substance: DEXAMETHASONE
  8. SHINGRIX [Concomitant]
     Active Substance: RECOMBINANT VARICELLA ZOSTER VIRUS (VZV) GLYCOPROTEIN E
  9. PROCHLORPERAZINE [Concomitant]
     Active Substance: PROCHLORPERAZINE

REACTIONS (9)
  - Abdominal discomfort [Not Recovered/Not Resolved]
  - Illness [Unknown]
  - Pollakiuria [Unknown]
  - Alopecia [Not Recovered/Not Resolved]
  - Fatigue [Unknown]
  - Pneumonia [Unknown]
  - Nausea [Not Recovered/Not Resolved]
  - Platelet count decreased [Unknown]
  - Drug ineffective [Unknown]

NARRATIVE: CASE EVENT DATE: 20240101
